FAERS Safety Report 9800054 (Version 3)
Quarter: 2015Q3

REPORT INFORMATION
  Report Type: Spontaneous
  Country: US (occurrence: US)
  Receive Date: 20140106
  Receipt Date: 20150806
  Transmission Date: 20151125
  Serious: No
  Sender: FDA-Public Use
  Company Number: US-GILEAD-2010-0032058

PATIENT
  Age: 77 Year
  Sex: Female
  Weight: 86.18 kg

DRUGS (13)
  1. HYDRALAZINE [Concomitant]
     Active Substance: HYDRALAZINE HYDROCHLORIDE
  2. TYLENOL [Concomitant]
     Active Substance: ACETAMINOPHEN
  3. MULTIVITAMIN [Concomitant]
     Active Substance: VITAMINS
  4. LASIX [Concomitant]
     Active Substance: FUROSEMIDE
  5. LOVASTATIN. [Concomitant]
     Active Substance: LOVASTATIN
  6. ZYRTEC [Concomitant]
     Active Substance: CETIRIZINE HYDROCHLORIDE
  7. NASONEX [Concomitant]
     Active Substance: MOMETASONE FUROATE
  8. LISINOPRIL. [Concomitant]
     Active Substance: LISINOPRIL
  9. ALBUTEROL. [Concomitant]
     Active Substance: ALBUTEROL
  10. POTASSIUM [Concomitant]
     Active Substance: POTASSIUM
  11. LETAIRIS [Suspect]
     Active Substance: AMBRISENTAN
     Indication: PULMONARY ARTERIAL HYPERTENSION
     Route: 048
     Dates: start: 20100804
  12. DILTIAZEM [Concomitant]
     Active Substance: DILTIAZEM
  13. WARFARIN [Concomitant]
     Active Substance: WARFARIN

REACTIONS (6)
  - Peripheral swelling [Unknown]
  - Malaise [Unknown]
  - Dehydration [Unknown]
  - Feeding disorder [Unknown]
  - Fatigue [Unknown]
  - Weight decreased [Unknown]
